FAERS Safety Report 6520515-X (Version None)
Quarter: 2009Q4

REPORT INFORMATION
  Report Type: 
  Country: None (occurrence: None)
  Receive Date: 20091229
  Receipt Date: 20091218
  Transmission Date: 20100525
  Serious: Yes (Other)
  Sender: FDA-Public Use
  Company Number: B0619250A

PATIENT
  Age: 78 Year
  Sex: Male

DRUGS (3)
  1. AVOLVE [Suspect]
     Indication: DRUG USE FOR UNKNOWN INDICATION
     Dosage: .5MG PER DAY
     Route: 048
     Dates: start: 20091105, end: 20090101
  2. HARNAL [Suspect]
     Route: 048
  3. EVIPROSTAT [Suspect]
     Route: 048

REACTIONS (1)
  - URINARY RETENTION [None]
